FAERS Safety Report 10528692 (Version 3)
Quarter: 2014Q4

REPORT INFORMATION
  Report Type: Report from Study
  Country: NL (occurrence: NL)
  Receive Date: 20141020
  Receipt Date: 20141212
  Transmission Date: 20150528
  Serious: Yes (Other)
  Sender: FDA-Public Use
  Company Number: NL-BAXTER-2014BAX061082

PATIENT
  Age: 53 Year
  Sex: Female

DRUGS (4)
  1. KIOVIG [Suspect]
     Active Substance: HUMAN IMMUNOGLOBULIN G
     Indication: MULTIFOCAL MOTOR NEUROPATHY
     Dosage: 1X PER 2 WEEKS 30 G
     Route: 042
     Dates: start: 20140925, end: 20140925
  2. KIOVIG [Suspect]
     Active Substance: HUMAN IMMUNOGLOBULIN G
     Indication: MULTIFOCAL MOTOR NEUROPATHY
     Dosage: 1X PER 2 WEEKS 10G
     Route: 042
     Dates: start: 20140925, end: 20140925
  3. KIOVIG [Suspect]
     Active Substance: HUMAN IMMUNOGLOBULIN G
     Dosage: 1X PER 2 WEEKS 10G
     Route: 042
     Dates: start: 20141009, end: 20141009
  4. KIOVIG [Suspect]
     Active Substance: HUMAN IMMUNOGLOBULIN G
     Dosage: 1X PER 2 WEEKS 30G
     Route: 042
     Dates: start: 20141009, end: 20141009

REACTIONS (2)
  - Vascular stenosis [Unknown]
  - Cyanosis [Unknown]

NARRATIVE: CASE EVENT DATE: 20141001
